FAERS Safety Report 25606368 (Version 1)
Quarter: 2025Q3

REPORT INFORMATION
  Report Type: Spontaneous
  Country: US (occurrence: US)
  Receive Date: 20250725
  Receipt Date: 20250725
  Transmission Date: 20251021
  Serious: No
  Sender: RECORDATI
  Company Number: US-RECORDATI RARE DISEASE INC.-2024003951

PATIENT
  Age: 21 Year
  Sex: Female

DRUGS (2)
  1. SYLVANT [Suspect]
     Active Substance: SILTUXIMAB
     Indication: Castleman^s disease
     Route: 042
     Dates: start: 20230612
  2. SYLVANT [Suspect]
     Active Substance: SILTUXIMAB
     Indication: Acne

REACTIONS (2)
  - Nasopharyngitis [Recovered/Resolved]
  - Off label use [Recovered/Resolved]

NARRATIVE: CASE EVENT DATE: 20230612
